FAERS Safety Report 5978514-2 (Version None)
Quarter: 2008Q4

REPORT INFORMATION
  Report Type: 
  Country: None (occurrence: None)
  Receive Date: 20081204
  Receipt Date: 20081130
  Transmission Date: 20090506
  Serious: Yes (Hospitalization)
  Sender: FDA-Public Use
  Company Number: GB-ROCHE-600195

PATIENT
  Sex: Female
  Weight: 86.5 kg

DRUGS (2)
  1. ORLISTAT [Suspect]
     Indication: OBESITY
     Route: 048
     Dates: start: 20080331, end: 20081004
  2. ORLISTAT [Suspect]
     Dosage: RESUMED TREATMENT AROUND A WEEK AGO.
     Route: 048
     Dates: start: 20081123

REACTIONS (2)
  - ABDOMINAL PAIN UPPER [None]
  - APPENDICECTOMY [None]
